FAERS Safety Report 23335417 (Version 1)
Quarter: 2023Q4

REPORT INFORMATION
  Report Type: Spontaneous
  Country: US (occurrence: US)
  Receive Date: 20231225
  Receipt Date: 20231225
  Transmission Date: 20240110
  Serious: No
  Sender: FDA-Public Use
  Company Number: US-Accord-361455

PATIENT
  Sex: Female

DRUGS (1)
  1. QUETIAPINE FUMARATE [Suspect]
     Active Substance: QUETIAPINE FUMARATE
     Indication: Bipolar disorder
     Dosage: AT BED TIME, EXTENDED-RELEASE, DECREASED HER DOSE TO 200 MG AND THEN SHE TOOK FOUR AT BEDTIME

REACTIONS (2)
  - Sedation [Unknown]
  - Incorrect dose administered [Unknown]
